FAERS Safety Report 9114891 (Version 3)
Quarter: 2013Q2

REPORT INFORMATION
  Report Type: Spontaneous
  Country: GB (occurrence: GB)
  Receive Date: 20130128
  Receipt Date: 20130402
  Transmission Date: 20140414
  Serious: Yes (Other)
  Sender: FDA-Public Use
  Company Number: GB-TEVA-381656ISR

PATIENT
  Sex: Male

DRUGS (1)
  1. CIPROFLOXACIN [Suspect]
     Indication: PROSTATITIS
     Dosage: 1000 MILLIGRAM DAILY;
     Route: 048
     Dates: start: 20121019

REACTIONS (10)
  - Tendonitis [Not Recovered/Not Resolved]
  - Bursitis [Unknown]
  - Arthralgia [Unknown]
  - Muscle twitching [Unknown]
  - Candida infection [Unknown]
  - Malaise [Unknown]
  - Fatigue [Unknown]
  - Headache [Unknown]
  - Nausea [Unknown]
  - Quality of life decreased [Unknown]
